FAERS Safety Report 8592396-4 (Version None)
Quarter: 2012Q3

REPORT INFORMATION
  Report Type: 
  Country: None (occurrence: None)
  Receive Date: 20120814
  Receipt Date: 20120806
  Transmission Date: 20120928
  Serious: Yes (Other)
  Sender: FDA-Public Use
  Company Number: ZA-BAYER-2012-040618

PATIENT
  Age: 24 Year
  Sex: Female

DRUGS (1)
  1. MIRENA [Suspect]
     Indication: CONTRACEPTION
     Dosage: DAILY DOSE 20 ?G
     Route: 015
     Dates: start: 20100720, end: 20120425

REACTIONS (5)
  - DEVICE BREAKAGE [None]
  - PAINFUL DEFAECATION [None]
  - COMPLICATION OF DEVICE REMOVAL [None]
  - UTERINE PERFORATION [None]
  - GENITAL HAEMORRHAGE [None]
